FAERS Safety Report 5920034-5 (Version None)
Quarter: 2008Q4

REPORT INFORMATION
  Report Type: 
  Country: None (occurrence: None)
  Receive Date: 20081014
  Receipt Date: 20081007
  Transmission Date: 20090506
  Serious: Yes (Other)
  Sender: FDA-Public Use
  Company Number: US024746

PATIENT
  Age: 63 Year
  Sex: Male
  Weight: 82.7 kg

DRUGS (15)
  1. TREANDA [Suspect]
     Indication: B-CELL LYMPHOMA
     Dosage: 204 MG INTRAVENOUS
     Route: 042
     Dates: start: 20080825, end: 20080826
  2. TREANDA [Suspect]
     Indication: B-CELL LYMPHOMA
     Dosage: 204 MG INTRAVENOUS
     Route: 042
     Dates: start: 20080924
  3. KYTRIL [Concomitant]
  4. LOVAZA [Concomitant]
  5. BENADRYL [Concomitant]
  6. TYLENOL [Concomitant]
  7. RITUXAN [Concomitant]
  8. DEXAMETHASONE [Concomitant]
  9. CARDURA [Concomitant]
  10. MULTI-VITAMIN [Concomitant]
  11. SULFATRIM [Concomitant]
  12. VALTREX [Concomitant]
  13. FINASTERIDE [Concomitant]
  14. ALLOPURINOL [Concomitant]
  15. NEULASTA [Concomitant]

REACTIONS (3)
  - CELLULITIS [None]
  - EXTRAVASATION [None]
  - PAIN [None]
